FAERS Safety Report 19288014 (Version 2)
Quarter: 2021Q2

REPORT INFORMATION
  Report Type: Report from Study
  Country: US (occurrence: US)
  Receive Date: 20210521
  Receipt Date: 20210526
  Transmission Date: 20210717
  Serious: Yes (Death, Hospitalization, Other)
  Sender: FDA-Public Use
  Company Number: US-AGIOS-2105US02771

PATIENT

DRUGS (7)
  1. ATORVASTATIN [Concomitant]
     Active Substance: ATORVASTATIN
  2. PROCHLORPERAZINE. [Concomitant]
     Active Substance: PROCHLORPERAZINE
  3. NITROGLYCERIN. [Concomitant]
     Active Substance: NITROGLYCERIN
  4. TIBSOVO [Suspect]
     Active Substance: IVOSIDENIB
     Indication: ACUTE MYELOID LEUKAEMIA
     Dosage: 500 MILLIGRAM (2 TABLETS X 250 MG), QD
     Route: 048
     Dates: start: 20200421, end: 20210311
  5. ONDANSETRON [Concomitant]
     Active Substance: ONDANSETRON
  6. ASPIRIN                            /00002701/ [Concomitant]
     Active Substance: ASPIRIN
  7. VENCLEXTA [Concomitant]
     Active Substance: VENETOCLAX

REACTIONS (7)
  - Tachypnoea [Unknown]
  - Asthenia [Unknown]
  - Anaemia [Unknown]
  - Febrile neutropenia [Fatal]
  - Acute myeloid leukaemia [Fatal]
  - Metabolic encephalopathy [Unknown]
  - Thrombocytopenia [Unknown]
